FAERS Safety Report 9648985 (Version 3)
Quarter: 2014Q2

REPORT INFORMATION
  Report Type: Spontaneous
  Country: US (occurrence: None)
  Receive Date: 20131018
  Receipt Date: 20140421
  Transmission Date: 20141212
  Serious: No
  Sender: FDA-Public Use
  Company Number: AEGR000086

PATIENT
  Age: 69 Year
  Sex: Female
  Weight: 68 kg

DRUGS (3)
  1. JUXTAPID [Suspect]
     Indication: TYPE IIA HYPERLIPIDAEMIA
     Dosage: 5 MG, QD, ORAL
     Route: 048
     Dates: start: 20130509, end: 20130605
  2. IRON (FERROUS SULFATE) [Concomitant]
  3. FISH OIL NATURE MADE (FISH OIL) [Concomitant]

REACTIONS (6)
  - Somnolence [None]
  - Asthenia [None]
  - Irritability [None]
  - Arthralgia [None]
  - Musculoskeletal discomfort [None]
  - Pain in extremity [None]
